FAERS Safety Report 5210134-X (Version None)
Quarter: 2006Q4

REPORT INFORMATION
  Report Type: 
  Country: None (occurrence: None)
  Receive Date: 20061103
  Receipt Date: 20060804
  Transmission Date: 20070319
  Serious: No
  Sender: FDA-Public Use
  Company Number: FACT0600321

PATIENT
  Age: 76 Year
  Sex: Female
  Weight: 79.4 kg

DRUGS (4)
  1. FACTIVE [Suspect]
     Indication: RESPIRATORY TRACT INFECTION BACTERIAL
     Dosage: 320 MG, QD, ORAL; 160 MG, QD,ORAL
     Route: 048
     Dates: start: 20060803, end: 20060804
  2. FACTIVE [Suspect]
     Indication: RESPIRATORY TRACT INFECTION BACTERIAL
     Dosage: 320 MG, QD, ORAL; 160 MG, QD,ORAL
     Route: 048
     Dates: start: 20060805
  3. ASPIRIN [Concomitant]
  4. ZETIA [Concomitant]

REACTIONS (2)
  - CHEST PAIN [None]
  - DYSPNOEA [None]
